FAERS Safety Report 5058170-0 (Version None)
Quarter: 2006Q3

REPORT INFORMATION
  Report Type: 
  Country: None (occurrence: None)
  Receive Date: 20060721
  Receipt Date: 20060713
  Transmission Date: 20061208
  Serious: Yes (Hospitalization)
  Sender: FDA-Public Use
  Company Number: 2006UW14543

PATIENT
  Age: 80 Year
  Sex: Female

DRUGS (11)
  1. CRESTOR [Suspect]
     Route: 048
     Dates: start: 20050201, end: 20050201
  2. CRESTOR [Suspect]
     Route: 048
  3. METFORMIN [Concomitant]
     Indication: DIABETES MELLITUS
     Route: 048
  4. SLOW-K [Concomitant]
     Route: 048
  5. GLYBURIDE [Concomitant]
     Indication: DIABETES MELLITUS
     Route: 048
  6. FERROUS SULFATE TAB [Concomitant]
     Route: 048
  7. VITAMIN B-12 [Concomitant]
     Route: 048
  8. LORAZEPAM [Concomitant]
     Indication: NERVOUSNESS
  9. LORAZEPAM [Concomitant]
     Indication: INSOMNIA
  10. LOSEC [Concomitant]
     Indication: STOMACH DISCOMFORT
     Route: 048
     Dates: start: 20060615
  11. EZETROL [Concomitant]
     Indication: BLOOD CHOLESTEROL
     Route: 048
     Dates: start: 20060523

REACTIONS (6)
  - ARTHRALGIA [None]
  - MOBILITY DECREASED [None]
  - MYALGIA [None]
  - OEDEMA PERIPHERAL [None]
  - RASH [None]
  - RASH PRURITIC [None]
